FAERS Safety Report 15473081 (Version 2)
Quarter: 2018Q4

REPORT INFORMATION
  Report Type: Report from Study
  Country: DE (occurrence: DE)
  Receive Date: 20181008
  Receipt Date: 20181114
  Transmission Date: 20190205
  Serious: Yes (Other)
  Sender: FDA-Public Use
  Company Number: DE-TORRENT-00010850

PATIENT
  Age: 35 Year
  Sex: Male

DRUGS (2)
  1. LAMOTRIGINE. [Suspect]
     Active Substance: LAMOTRIGINE
     Indication: EPILEPSY
     Dosage: INCREASED TO 200 MG DAILY
     Route: 048
  2. CARBAMAZEPINE. [Suspect]
     Active Substance: CARBAMAZEPINE
     Indication: EPILEPSY
     Dosage: DAILY DOSE: 1200.000 (E2B UNIT: 003)
     Route: 065

REACTIONS (6)
  - Psychotic disorder [Recovering/Resolving]
  - Hallucination, visual [Recovered/Resolved]
  - Delusion [Recovered/Resolved]
  - Substance-induced psychotic disorder [Recovering/Resolving]
  - Illusion [Recovering/Resolving]
  - Discomfort [Recovering/Resolving]
